FAERS Safety Report 8291580 (Version 3)
Quarter: 2016Q1

REPORT INFORMATION
  Report Type: Spontaneous
  Country: US (occurrence: US)
  Receive Date: 20111214
  Receipt Date: 20160112
  Transmission Date: 20160526
  Serious: Yes (Hospitalization)
  Sender: FDA-Public Use
  Company Number: US-GLAXOSMITHKLINE-A0958074A

PATIENT
  Age: 59 Year
  Sex: Female

DRUGS (10)
  1. REQUIP [Suspect]
     Active Substance: ROPINIROLE HYDROCHLORIDE
     Indication: RESTLESS LEGS SYNDROME
     Route: 065
  2. ADVAIR HFA [Suspect]
     Active Substance: FLUTICASONE PROPIONATE\SALMETEROL XINAFOATE
     Route: 055
  3. GABAPENTIN. [Concomitant]
     Active Substance: GABAPENTIN
  4. VENTOLIN [Suspect]
     Active Substance: ALBUTEROL SULFATE
     Route: 055
  5. XARELTO [Suspect]
     Active Substance: RIVAROXABAN
  6. FLONASE [Suspect]
     Active Substance: FLUTICASONE PROPIONATE
     Route: 055
  7. LOVAZA [Suspect]
     Active Substance: OMEGA-3-ACID ETHYL ESTERS
     Route: 065
  8. ATIVAN [Concomitant]
     Active Substance: LORAZEPAM
  9. NUCYNTA ER [Concomitant]
     Active Substance: TAPENTADOL HYDROCHLORIDE
  10. VILAZODONE [Concomitant]
     Active Substance: VILAZODONE

REACTIONS (4)
  - Dehydration [Unknown]
  - Depression [Recovered/Resolved]
  - Confusional state [Recovered/Resolved]
  - Illusion [Recovered/Resolved]

NARRATIVE: CASE EVENT DATE: 201111
